FAERS Safety Report 14919038 (Version 1)
Quarter: 2018Q2

REPORT INFORMATION
  Report Type: Spontaneous
  Country: DE (occurrence: DE)
  Receive Date: 20180521
  Receipt Date: 20180521
  Transmission Date: 20180711
  Serious: Yes (Hospitalization)
  Sender: FDA-Public Use
  Company Number: DE-PFIZER INC-2018203757

PATIENT
  Age: 57 Year
  Sex: Female

DRUGS (1)
  1. CELECOXIB. [Suspect]
     Active Substance: CELECOXIB
     Indication: ADENOMATOUS POLYPOSIS COLI
     Dosage: 100 MG, 1X/DAY

REACTIONS (6)
  - Abdominal pain lower [Unknown]
  - General physical health deterioration [Unknown]
  - Asthenia [Unknown]
  - Pyrexia [Unknown]
  - Tremor [Unknown]
  - Pain in extremity [Unknown]
